FAERS Safety Report 6757463-6 (Version None)
Quarter: 2010Q2

REPORT INFORMATION
  Report Type: 
  Country: None (occurrence: None)
  Receive Date: 20100607
  Receipt Date: 20100527
  Transmission Date: 20101027
  Serious: No
  Sender: FDA-Public Use
  Company Number: US-BIOGENIDEC-2010BI017518

PATIENT
  Age: 59 Year
  Sex: Female

DRUGS (5)
  1. AVONEX [Suspect]
     Indication: MULTIPLE SCLEROSIS
     Route: 030
     Dates: start: 20100429
  2. KLONOPIN [Concomitant]
     Indication: RESTLESS LEGS SYNDROME
     Route: 048
     Dates: start: 19980101
  3. IBUPROFEN [Concomitant]
     Indication: RESTLESS LEGS SYNDROME
     Route: 048
     Dates: start: 20070101
  4. REBIF [Concomitant]
     Indication: PAIN IN EXTREMITY
     Dates: start: 20060101
  5. TOPROL-XL [Concomitant]
     Indication: HYPERTENSION
     Route: 048
     Dates: start: 20020101

REACTIONS (8)
  - FLANK PAIN [None]
  - HEART RATE INCREASED [None]
  - HYPERTENSION [None]
  - NAUSEA [None]
  - PYREXIA [None]
  - RENAL PAIN [None]
  - RESTLESS LEGS SYNDROME [None]
  - TEMPERATURE INTOLERANCE [None]
